FAERS Safety Report 9008997 (Version 1)
Quarter: 2013Q1

REPORT INFORMATION
  Report Type: Report from Study
  Country: CM (occurrence: CM)
  Receive Date: 20130111
  Receipt Date: 20130111
  Transmission Date: 20140127
  Serious: Yes (Life-Threatening, Hospitalization)
  Sender: FDA-Public Use
  Company Number: CM-GILEAD-2012-0061961

PATIENT
  Age: 32 Year
  Sex: Female

DRUGS (5)
  1. EMTRICITABINE/TENOFOVIR DISOPROXIL FUMARATE [Suspect]
     Indication: HIV INFECTION
     Dosage: 1 DF, QD
     Route: 048
     Dates: start: 20110623
  2. LOPINAVIR W/RITONAVIR [Suspect]
     Indication: HIV INFECTION
     Dosage: 1000 MG, QD
     Route: 048
     Dates: start: 20110623
  3. TARDYFERON [Concomitant]
     Indication: ANAEMIA PROPHYLAXIS
     Dosage: 1 DF, QD
     Route: 048
     Dates: start: 20120610
  4. FANSIDAR [Concomitant]
     Indication: MALARIA PROPHYLAXIS
     Dosage: 3 DF, QD
     Route: 048
     Dates: start: 20120610, end: 20120610
  5. SYNTOCINON [Concomitant]
     Indication: UTERINE CONTRACTIONS ABNORMAL
     Dosage: 1 DF, QD
     Dates: start: 20120728, end: 20120728

REACTIONS (2)
  - Placenta praevia [Recovered/Resolved]
  - Pregnancy [Recovered/Resolved]
